FAERS Safety Report 9637501 (Version 1)
Quarter: 2013Q4

REPORT INFORMATION
  Report Type: Report from Study
  Country: CA (occurrence: CA)
  Receive Date: 20131022
  Receipt Date: 20131022
  Transmission Date: 20140711
  Serious: Yes (Other)
  Sender: FDA-Public Use
  Company Number: CA-JNJFOC-20131010108

PATIENT
  Age: 44 Year
  Sex: Male
  Weight: 92.1 kg

DRUGS (1)
  1. REMICADE [Suspect]
     Indication: CROHN^S DISEASE
     Route: 042
     Dates: start: 20110825

REACTIONS (2)
  - Colectomy [Recovered/Resolved]
  - Enterostomy [Unknown]
